FAERS Safety Report 17197742 (Version 1)
Quarter: 2019Q4

REPORT INFORMATION
  Report Type: Report from Study
  Country: US (occurrence: US)
  Receive Date: 20191224
  Receipt Date: 20191224
  Transmission Date: 20200122
  Serious: Yes (Hospitalization)
  Sender: FDA-Public Use
  Company Number: US-EXELIXIS-CABO-19025371

PATIENT
  Sex: Male

DRUGS (1)
  1. CABOMETYX [Suspect]
     Active Substance: CABOZANTINIB S-MALATE
     Indication: RENAL CELL CARCINOMA
     Dosage: 40 MG, QD (AM W/O FOOD)
     Dates: start: 20191022, end: 20191207

REACTIONS (4)
  - Diarrhoea [Recovering/Resolving]
  - Fatigue [Unknown]
  - Cheilitis [Recovering/Resolving]
  - Vomiting [Recovering/Resolving]
